FAERS Safety Report 7652125-5 (Version None)
Quarter: 2011Q3

REPORT INFORMATION
  Report Type: 
  Country: None (occurrence: None)
  Receive Date: 20110803
  Receipt Date: 20110727
  Transmission Date: 20111222
  Serious: Yes (Death, Other)
  Sender: FDA-Public Use
  Company Number: JP-JNJFOC-20110800081

PATIENT
  Sex: Female
  Weight: 57 kg

DRUGS (40)
  1. KENACORT-A OPHTHALMIC OINTMENT [Concomitant]
     Route: 042
     Dates: start: 20091120, end: 20091120
  2. VITAMEDIN [Concomitant]
     Route: 042
     Dates: start: 20091222, end: 20100103
  3. HUMULIN R [Concomitant]
     Route: 058
     Dates: start: 20100103, end: 20100105
  4. DOXORUBICIN HCL [Suspect]
     Dosage: CYCLE 2
     Route: 042
     Dates: start: 20091217, end: 20091217
  5. ONDANSETRON [Concomitant]
     Route: 042
     Dates: start: 20091119, end: 20091120
  6. LEVOFLOXACIN [Concomitant]
     Route: 048
     Dates: start: 20091221, end: 20091225
  7. CODEINE SULFATE [Concomitant]
     Dosage: FINR GRAIN
     Route: 048
     Dates: start: 20091221, end: 20091225
  8. LOXONIN [Concomitant]
     Route: 048
     Dates: start: 20091222, end: 20091230
  9. DOXORUBICIN HCL [Suspect]
     Indication: OVARIAN CANCER RECURRENT
     Dosage: CYCLE 1
     Route: 042
     Dates: start: 20091118, end: 20091118
  10. ALBUMIN (HUMAN) [Concomitant]
     Route: 042
     Dates: start: 20091121, end: 20091122
  11. DEPAKENE [Concomitant]
     Route: 048
     Dates: end: 20100105
  12. CEPHARANTHINE [Concomitant]
     Route: 048
     Dates: end: 20091216
  13. CISPLATIN [Concomitant]
     Route: 042
     Dates: start: 20091224, end: 20091224
  14. PRIMPERAN TAB [Concomitant]
     Route: 042
     Dates: start: 20091222, end: 20100105
  15. TPN ELECTROLYTES IN PLASTIC CONTAINER [Concomitant]
     Route: 041
     Dates: start: 20091230, end: 20100103
  16. UNKNOWN MEDICATION [Concomitant]
     Route: 058
     Dates: start: 20091224, end: 20091230
  17. UNASYN [Concomitant]
     Route: 042
     Dates: start: 20091222, end: 20091224
  18. JUZEN-TAIHO-TO [Concomitant]
     Route: 048
     Dates: end: 20091217
  19. IMMUNE GLOBULIN INTRAVENOUS (HUMAN) [Concomitant]
     Route: 042
     Dates: start: 20091225, end: 20100103
  20. CIPROFLOXACIN HYDROCHLORIDE [Concomitant]
     Route: 065
     Dates: start: 20091230, end: 20100105
  21. LEUKOPROL [Concomitant]
     Route: 042
     Dates: start: 20091217, end: 20091222
  22. UNASYN [Concomitant]
     Route: 042
     Dates: start: 20091221, end: 20091221
  23. ZANTAC [Concomitant]
     Route: 042
     Dates: end: 20091119
  24. DEXTROMETHORPHAN HYDROBROMIDE [Concomitant]
     Route: 048
     Dates: start: 20091219, end: 20091223
  25. FUNGIZONE [Concomitant]
     Route: 042
     Dates: start: 20091228, end: 20100105
  26. MORPHINE HCL ELIXIR [Concomitant]
     Route: 042
     Dates: start: 20100103, end: 20100105
  27. POTASSIUM CHLORIDE [Concomitant]
     Route: 042
     Dates: start: 20091229, end: 20100109
  28. AZUNOL [Concomitant]
     Route: 061
     Dates: start: 20091231, end: 20091231
  29. HICALIQ [Concomitant]
     Route: 041
     Dates: start: 20100102, end: 20100105
  30. MEROPENEM HYDRATE [Concomitant]
     Route: 041
     Dates: start: 20051225, end: 20100105
  31. LAC-B [Concomitant]
     Route: 048
     Dates: end: 20091216
  32. KYTRIL [Concomitant]
     Route: 042
  33. MUCOSOLVAN [Concomitant]
     Route: 048
     Dates: start: 20091224, end: 20091230
  34. FUTHAN [Concomitant]
     Route: 042
     Dates: start: 20091229, end: 20100105
  35. MAGMITT [Concomitant]
     Route: 048
     Dates: end: 20091216
  36. DEXAMETHASONE SODIUM PHOSPHATE [Concomitant]
     Route: 042
     Dates: start: 20091216, end: 20091216
  37. HEPARIN [Concomitant]
     Route: 061
     Dates: start: 20091216, end: 20091216
  38. HOKUNALIN [Concomitant]
     Route: 003
     Dates: start: 20091221, end: 20100105
  39. HICORT [Concomitant]
     Route: 065
     Dates: start: 20091230, end: 20100105
  40. M.V.I. [Concomitant]
     Route: 041
     Dates: start: 20100102, end: 20100105

REACTIONS (3)
  - PNEUMONIA [None]
  - NEUTROPHIL COUNT DECREASED [None]
  - WHITE BLOOD CELL COUNT DECREASED [None]
